FAERS Safety Report 25425202 (Version 1)
Quarter: 2025Q2

REPORT INFORMATION
  Report Type: Spontaneous
  Country: FR (occurrence: FR)
  Receive Date: 20250611
  Receipt Date: 20250611
  Transmission Date: 20250716
  Serious: Yes (Hospitalization)
  Sender: NOVARTIS
  Company Number: None

PATIENT
  Age: 86 Year
  Sex: Female
  Weight: 37.7 kg

DRUGS (2)
  1. TAFINLAR [Suspect]
     Active Substance: DABRAFENIB MESYLATE
     Indication: Langerhans^ cell histiocytosis
     Dosage: 75 MG, Q12H
     Route: 048
     Dates: start: 20250401, end: 20250403
  2. MEKINIST [Suspect]
     Active Substance: TRAMETINIB DIMETHYL SULFOXIDE
     Indication: Langerhans^ cell histiocytosis
     Dosage: 2 MG, QD
     Route: 048
     Dates: start: 20250401, end: 20250403

REACTIONS (2)
  - Dysgeusia [Recovering/Resolving]
  - Starvation [Recovering/Resolving]

NARRATIVE: CASE EVENT DATE: 20250411
